FAERS Safety Report 4590158-6 (Version None)
Quarter: 2005Q1

REPORT INFORMATION
  Report Type: 
  Country: None (occurrence: None)
  Receive Date: 20050217
  Receipt Date: 20050211
  Transmission Date: 20050727
  Serious: Yes (Hospitalization)
  Sender: FDA-Public Use
  Company Number: GBWYE283515DEC04

PATIENT
  Age: 49 Year
  Sex: Male

DRUGS (12)
  1. RAPAMUNE [Suspect]
     Indication: PROPHYLAXIS AGAINST TRANSPLANT REJECTION
     Dosage: 3 MG 1X PER 1 DAY
     Route: 048
     Dates: start: 20040628
  2. DAKTACORT                (HYDROCORTISONE / MICONAZOLE NITRATE) [Concomitant]
  3. ALENDRONATE SODIUM [Concomitant]
  4. SIMVASTATIN [Concomitant]
  5. FUROSEMIDE [Concomitant]
  6. EFUDIX         (FLUOROURACIL) [Concomitant]
  7. AZATHIOPRINE [Concomitant]
  8. PREDNISONE [Concomitant]
  9. LISINOPRIL [Concomitant]
  10. BISOPROLOL FUMARATE [Concomitant]
  11. ALFACALCIDOL             (ALFACALCIDOL) [Concomitant]
  12. ASPIRIN [Concomitant]

REACTIONS (3)
  - DEEP VEIN THROMBOSIS [None]
  - NEOPLASM RECURRENCE [None]
  - SQUAMOUS CELL CARCINOMA OF SKIN [None]
